FAERS Safety Report 24581179 (Version 1)
Quarter: 2024Q4

REPORT INFORMATION
  Report Type: Spontaneous
  Country: CA (occurrence: CA)
  Receive Date: 20241105
  Receipt Date: 20241105
  Transmission Date: 20250114
  Serious: Yes (Other)
  Sender: STALLERGENES
  Company Number: CA-STALCOR-2024-AER-02187

PATIENT
  Age: 42 Year
  Sex: Male

DRUGS (17)
  1. CAT HAIR, STANDARDIZED [Suspect]
     Active Substance: FELIS CATUS HAIR
     Indication: Hypersensitivity
     Route: 058
  2. CAT HAIR, STANDARDIZED [Suspect]
     Active Substance: FELIS CATUS HAIR
     Route: 058
     Dates: start: 20220802
  3. DOG EPITHELIUM [Suspect]
     Active Substance: CANIS LUPUS FAMILIARIS SKIN
     Indication: Hypersensitivity
     Route: 058
  4. DOG EPITHELIUM [Suspect]
     Active Substance: CANIS LUPUS FAMILIARIS SKIN
     Route: 058
     Dates: start: 20220802
  5. HORSE EPITHELIUM [Suspect]
     Active Substance: EQUUS CABALLUS SKIN
     Indication: Hypersensitivity
     Route: 058
  6. HORSE EPITHELIUM [Suspect]
     Active Substance: EQUUS CABALLUS SKIN
     Route: 058
     Dates: start: 20220802
  7. 5 GRASS MIX [Suspect]
     Active Substance: AGROSTIS GIGANTEA POLLEN\ANTHOXANTHUM ODORATUM\DACTYLIS GLOMERATA\PHLEUM PRATENSE\POA PRATENSIS
     Indication: Hypersensitivity
     Route: 058
  8. 5 GRASS MIX [Suspect]
     Active Substance: AGROSTIS GIGANTEA POLLEN\ANTHOXANTHUM ODORATUM\DACTYLIS GLOMERATA\PHLEUM PRATENSE\POA PRATENSIS
     Route: 058
     Dates: start: 20220802
  9. 9 TREE MIX [Suspect]
     Active Substance: ACER SACCHARUM POLLEN\ALNUS RHOMBIFOLIA POLLEN\BETULA LENTA POLLEN\CARYA OVATA POLLEN\FRAXINUS AMERI
     Indication: Hypersensitivity
     Route: 058
  10. 9 TREE MIX [Suspect]
     Active Substance: ACER SACCHARUM POLLEN\ALNUS RHOMBIFOLIA POLLEN\BETULA LENTA POLLEN\CARYA OVATA POLLEN\FRAXINUS AMERI
     Route: 058
     Dates: start: 20220802
  11. 4 WEED MIX [Suspect]
     Active Substance: AMARANTHUS RETROFLEXUS POLLEN\CHENOPODIUM ALBUM POLLEN\PLANTAGO LANCEOLATA POLLEN\XANTHIUM STRUMARIU
     Indication: Hypersensitivity
     Route: 058
  12. 4 WEED MIX [Suspect]
     Active Substance: AMARANTHUS RETROFLEXUS POLLEN\CHENOPODIUM ALBUM POLLEN\PLANTAGO LANCEOLATA POLLEN\XANTHIUM STRUMARIU
     Route: 058
     Dates: start: 20220802
  13. STERILE DILUENT FOR ALLERGENIC EXTRACT (PHENOL) [Suspect]
     Active Substance: PHENOL
     Indication: Hypersensitivity
     Route: 058
  14. STERILE DILUENT FOR ALLERGENIC EXTRACT (PHENOL) [Suspect]
     Active Substance: PHENOL
     Route: 058
     Dates: start: 20220802
  15. RUPATADINE FUMARATE [Concomitant]
     Active Substance: RUPATADINE FUMARATE
     Indication: Product used for unknown indication
     Dosage: 10 MILLIGRAM TABLETS, ONE TO TWO TABLETS AS NEEDED
  16. DYMISTA [Concomitant]
     Active Substance: AZELASTINE HYDROCHLORIDE\FLUTICASONE PROPIONATE
     Indication: Product used for unknown indication
     Dosage: AS NEEDED
  17. BILASTINE [Concomitant]
     Active Substance: BILASTINE
     Indication: Product used for unknown indication
     Dosage: AS NEEDED

REACTIONS (5)
  - Anaphylactic reaction [Recovered/Resolved]
  - Cough [Recovered/Resolved]
  - Wheezing [Recovered/Resolved]
  - Conjunctivitis [Recovered/Resolved]
  - Urticaria [Recovered/Resolved]

NARRATIVE: CASE EVENT DATE: 20240905
